FAERS Safety Report 4420900-6 (Version None)
Quarter: 2004Q3

REPORT INFORMATION
  Report Type: 
  Country: None (occurrence: None)
  Receive Date: 20040809
  Receipt Date: 20040804
  Transmission Date: 20050211
  Serious: Yes (Life-Threatening)
  Sender: FDA-Public Use
  Company Number: FR-ROCHE-376620

PATIENT
  Age: 78 Year
  Sex: Female
  Weight: 48 kg

DRUGS (7)
  1. APRANAX [Suspect]
     Indication: DRUG USE FOR UNKNOWN INDICATION
     Dosage: TAKEN AT 19:00 HOURS.
     Route: 048
     Dates: start: 20040525, end: 20040525
  2. IMODIUM [Concomitant]
  3. PLAVIX [Concomitant]
  4. DILTIAZEM HCL [Concomitant]
     Indication: ANGINA PECTORIS
     Route: 048
  5. PULMICORT [Concomitant]
     Route: 055
  6. ZELITREX [Concomitant]
     Dosage: TOTAL DAILY DOSE REPORTED AS 4 TABLETS BI.
     Route: 048
     Dates: start: 20040522, end: 20040525
  7. SEREVENT [Concomitant]
     Route: 055

REACTIONS (1)
  - ASTHMA [None]
